FAERS Safety Report 26025251 (Version 2)
Quarter: 2025Q4

REPORT INFORMATION
  Report Type: Spontaneous
  Country: US (occurrence: US)
  Receive Date: 20251111
  Receipt Date: 20251218
  Transmission Date: 20260117
  Serious: No
  Sender: GLAXOSMITHKLINE
  Company Number: US-GSK-US2025144958

PATIENT
  Sex: Female

DRUGS (1)
  1. BREO ELLIPTA [Suspect]
     Active Substance: FLUTICASONE FUROATE\VILANTEROL TRIFENATATE
     Indication: Asthma
     Dosage: UNK, 30 INHALATIONS

REACTIONS (4)
  - Dyspnoea [Recovered/Resolved]
  - Wheezing [Recovered/Resolved]
  - Asthma [Recovered/Resolved]
  - Product complaint [Unknown]
